FAERS Safety Report 8839946 (Version 2)
Quarter: 2012Q4

REPORT INFORMATION
  Report Type: 
  Country: US (occurrence: US)
  Receive Date: 20121015
  Receipt Date: 20121113
  Transmission Date: 20130627
  Serious: Yes (Hospitalization, Other)
  Sender: FDA-Public Use
  Company Number: US-CELGENEUS-163-21880-12100929

PATIENT
  Age: 75 Year
  Sex: Female

DRUGS (5)
  1. REVLIMID [Suspect]
     Indication: MULTIPLE MYELOMA
     Dosage: 15 Milligram
     Route: 048
     Dates: start: 20111209, end: 20120220
  2. REVLIMID [Suspect]
     Dosage: 5 Milligram
     Route: 048
     Dates: start: 20121005
  3. VELCADE [Suspect]
     Indication: MULTIPLE MYELOMA
     Dosage: 2.2 Milligram
     Route: 065
     Dates: start: 20111208, end: 20111212
  4. DEXAMETHASONE [Concomitant]
     Indication: MULTIPLE MYELOMA
     Dosage: 20 Milligram
     Dates: start: 20111208, end: 20111212
  5. COREG [Concomitant]
     Indication: CONGESTIVE HEART FAILURE
     Dosage: 6.25 Milligram
     Dates: start: 20111216

REACTIONS (2)
  - Cardiac failure congestive [Recovering/Resolving]
  - Anaemia [Unknown]
